FAERS Safety Report 24050666 (Version 1)
Quarter: 2024Q3

REPORT INFORMATION
  Report Type: Spontaneous
  Country: IT (occurrence: IT)
  Receive Date: 20240704
  Receipt Date: 20240704
  Transmission Date: 20241017
  Serious: Yes (Other)
  Sender: NOVARTIS
  Company Number: None

PATIENT
  Age: 41 Year
  Sex: Female

DRUGS (1)
  1. DEFEROXAMINE [Suspect]
     Active Substance: DEFEROXAMINE MESYLATE
     Indication: Thalassaemia
     Dosage: UNK
     Route: 058
     Dates: start: 202301

REACTIONS (1)
  - Serum ferritin increased [Not Recovered/Not Resolved]

NARRATIVE: CASE EVENT DATE: 20230101
